FAERS Safety Report 6839583-0 (Version None)
Quarter: 2010Q3

REPORT INFORMATION
  Report Type: 
  Country: None (occurrence: None)
  Receive Date: 20100714
  Receipt Date: 20100503
  Transmission Date: 20110219
  Serious: No
  Sender: FDA-Public Use
  Company Number: A0855897A

PATIENT
  Age: 69 Year
  Sex: Female

DRUGS (4)
  1. FLOVENT [Suspect]
     Indication: COUGH
     Dosage: 1PCT TWICE PER DAY
     Route: 055
     Dates: start: 20100325
  2. VENTOLIN [Suspect]
     Indication: COUGH
     Route: 055
     Dates: start: 20100325
  3. LISINOPRIL [Concomitant]
  4. SINGULAIR [Concomitant]

REACTIONS (3)
  - DRUG INEFFECTIVE [None]
  - DYSPNOEA [None]
  - WRONG TECHNIQUE IN DRUG USAGE PROCESS [None]
